APPROVED DRUG PRODUCT: ACTIGALL
Active Ingredient: URSODIOL
Strength: 300MG
Dosage Form/Route: CAPSULE;ORAL
Application: N019594 | Product #002 | TE Code: AB
Applicant: TEVA BRANDED PHARMACEUTICAL PRODUCTS R AND D INC
Approved: Dec 31, 1987 | RLD: Yes | RS: Yes | Type: RX